FAERS Safety Report 22389317 (Version 1)
Quarter: 2023Q2

REPORT INFORMATION
  Report Type: Spontaneous
  Country: US (occurrence: US)
  Receive Date: 20230531
  Receipt Date: 20230531
  Transmission Date: 20230722
  Serious: Yes (Hospitalization)
  Sender: FDA-Public Use
  Company Number: US-MYLANLABS-2023M1056321

PATIENT
  Age: 46 Year
  Sex: Female

DRUGS (3)
  1. OXALIPLATIN [Suspect]
     Active Substance: OXALIPLATIN
     Indication: Adenocarcinoma of colon
     Dosage: UNK, AS A PART OF FOLFOX REGIMEN
     Route: 065
  2. LEUCOVORIN CALCIUM [Concomitant]
     Active Substance: LEUCOVORIN CALCIUM
     Indication: Adenocarcinoma of colon
     Dosage: UNK, AS A PART OF FOLFOX REGIMEN
     Route: 065
  3. FLUOROURACIL [Concomitant]
     Active Substance: FLUOROURACIL
     Indication: Adenocarcinoma of colon
     Dosage: UNK, AS A PART OF FOLFOX REGIMEN
     Route: 065

REACTIONS (5)
  - Nodular regenerative hyperplasia [Unknown]
  - Non-cirrhotic portal hypertension [Unknown]
  - Gastric ulcer [Unknown]
  - Varices oesophageal [Unknown]
  - Splenomegaly [Unknown]
